FAERS Safety Report 14390649 (Version 1)
Quarter: 2018Q1

REPORT INFORMATION
  Report Type: Spontaneous
  Country: IN (occurrence: IN)
  Receive Date: 20180116
  Receipt Date: 20180116
  Transmission Date: 20180509
  Serious: Yes (Other)
  Sender: FDA-Public Use
  Company Number: IN-CIPLA LTD.-2018IN00945

PATIENT

DRUGS (2)
  1. ZOLEDRONIC ACID [Suspect]
     Active Substance: ZOLEDRONIC ACID
     Indication: METASTASIS
     Dosage: UNK, WEEKLY 4 INJECTIONS
     Route: 065
  2. GEFITINIB. [Suspect]
     Active Substance: GEFITINIB
     Indication: METASTASIS
     Dosage: 250 MG, QD
     Route: 065

REACTIONS (4)
  - Weight decreased [Unknown]
  - Madarosis [Unknown]
  - Drug intolerance [Unknown]
  - Condition aggravated [Unknown]
